FAERS Safety Report 13425942 (Version 1)
Quarter: 2017Q2

REPORT INFORMATION
  Report Type: Spontaneous
  Country: US (occurrence: US)
  Receive Date: 20170411
  Receipt Date: 20170411
  Transmission Date: 20170830
  Serious: No
  Sender: FDA-Public Use
  Company Number: US-JNJFOC-20170209730

PATIENT
  Age: 59 Year
  Sex: Female

DRUGS (1)
  1. SIMPONI [Suspect]
     Active Substance: GOLIMUMAB
     Indication: COLITIS MICROSCOPIC
     Route: 058

REACTIONS (5)
  - Off label use [Unknown]
  - Pain [Unknown]
  - Product use in unapproved indication [Unknown]
  - Fatigue [Unknown]
  - Diarrhoea [Unknown]
